FAERS Safety Report 8362149 (Version 3)
Quarter: 2012Q4

REPORT INFORMATION
  Report Type: 
  Country: CA (occurrence: CA)
  Receive Date: 20120130
  Receipt Date: 20121005
  Transmission Date: 20130627
  Serious: Yes (Hospitalization, Other)
  Sender: FDA-Public Use
  Company Number: CA-JNJFOC-20120112597

PATIENT
  Age: 48 None
  Sex: Female
  Weight: 98 kg

DRUGS (5)
  1. REMICADE [Suspect]
     Indication: ANKYLOSING SPONDYLITIS
     Route: 042
     Dates: start: 20120112
  2. REMICADE [Suspect]
     Indication: ANKYLOSING SPONDYLITIS
     Route: 042
     Dates: start: 20070329, end: 20110926
  3. REMICADE [Suspect]
     Indication: ANKYLOSING SPONDYLITIS
     Route: 042
     Dates: start: 20120327
  4. CORTEF [Concomitant]
  5. CELEBREX [Concomitant]
     Indication: ANKYLOSING SPONDYLITIS
     Route: 065
     Dates: start: 2008

REACTIONS (3)
  - Pituitary tumour benign [Recovering/Resolving]
  - Intervertebral disc protrusion [Unknown]
  - Spinal column stenosis [Unknown]
